FAERS Safety Report 5301967-X (Version None)
Quarter: 2007Q1

REPORT INFORMATION
  Report Type: 
  Country: None (occurrence: None)
  Receive Date: 20070201
  Receipt Date: 20061214
  Transmission Date: 20070707
  Serious: No
  Sender: FDA-Public Use
  Company Number: 2006PV026959

PATIENT
  Age: 51 Year
  Sex: Female
  Weight: 73.4827 kg

DRUGS (3)
  1. BYETTA [Suspect]
     Indication: DIABETES MELLITUS NON-INSULIN-DEPENDENT
     Dosage: 5 MCG; BID; SC
     Route: 058
     Dates: start: 20061207
  2. METFORMIN HCL [Concomitant]
  3. CRESTOR [Concomitant]

REACTIONS (4)
  - DIARRHOEA [None]
  - FAECAL INCONTINENCE [None]
  - NAUSEA [None]
  - SNEEZING [None]
